FAERS Safety Report 6670299-X (Version None)
Quarter: 2010Q2

REPORT INFORMATION
  Report Type: 
  Country: None (occurrence: None)
  Receive Date: 20100406
  Receipt Date: 20100330
  Transmission Date: 20101027
  Serious: Yes (Death)
  Sender: FDA-Public Use
  Company Number: JP-BRISTOL-MYERS SQUIBB COMPANY-14564694

PATIENT
  Age: 80 Year
  Sex: Female
  Weight: 51 kg

DRUGS (10)
  1. ERBITUX [Suspect]
     Indication: COLON CANCER
     Route: 042
     Dates: start: 20081120, end: 20081120
  2. BEVACIZUMAB [Suspect]
     Indication: COLON CANCER
     Route: 042
     Dates: start: 20080221, end: 20080926
  3. RESTAMIN [Concomitant]
     Indication: PREMEDICATION
     Dosage: FORMULATION: RESTAMIN KOWA TABLET.
     Route: 048
     Dates: start: 20081120, end: 20081120
  4. DEXART [Concomitant]
     Indication: PREMEDICATION
     Route: 042
     Dates: start: 20081120, end: 20081120
  5. GRANISETRON [Concomitant]
     Indication: ANTIEMETIC SUPPORTIVE CARE
     Route: 042
     Dates: start: 20081120, end: 20081120
  6. ADALAT [Concomitant]
     Dosage: ADALAT  TABS
     Route: 048
     Dates: start: 20080404, end: 20081129
  7. PANTOSIN [Concomitant]
     Route: 048
     Dates: start: 20070904, end: 20081129
  8. FAMOTIDINE [Concomitant]
     Dosage: TABS
     Route: 048
     Dates: start: 20080414, end: 20081129
  9. URSODEOXYCHOLIC ACID [Concomitant]
     Dosage: TABS
     Route: 048
     Dates: start: 20081110, end: 20081129
  10. DECADRON [Concomitant]
     Indication: PREMEDICATION
     Route: 042
     Dates: start: 20081120, end: 20081120

REACTIONS (1)
  - SUBARACHNOID HAEMORRHAGE [None]
